FAERS Safety Report 14118761 (Version 1)
Quarter: 2017Q4

REPORT INFORMATION
  Report Type: Spontaneous
  Country: US (occurrence: US)
  Receive Date: 20171024
  Receipt Date: 20171024
  Transmission Date: 20180321
  Serious: No
  Sender: FDA-Public Use
  Company Number: US-UNICHEM LABORATORIES LIMITED-UCM201709-000242

PATIENT
  Sex: Female
  Weight: 90 kg

DRUGS (9)
  1. VALSARTAN. [Concomitant]
     Active Substance: VALSARTAN
  2. METOPROLOL. [Concomitant]
     Active Substance: METOPROLOL
  3. MONTELUKAST [Suspect]
     Active Substance: MONTELUKAST SODIUM
  4. VITAMIN B12 [Concomitant]
     Active Substance: CYANOCOBALAMIN
  5. LASTACAFT [Concomitant]
     Active Substance: ALCAFTADINE
  6. MONTELUKAST [Suspect]
     Active Substance: MONTELUKAST SODIUM
  7. VITAMIN D3 [Concomitant]
     Active Substance: CHOLECALCIFEROL
  8. NIFEDIPINE. [Concomitant]
     Active Substance: NIFEDIPINE
  9. LUMIGAN [Concomitant]
     Active Substance: BIMATOPROST

REACTIONS (1)
  - Rash [Not Recovered/Not Resolved]
